FAERS Safety Report 5895600-6 (Version None)
Quarter: 2008Q3

REPORT INFORMATION
  Report Type: 
  Country: None (occurrence: None)
  Receive Date: 20080924
  Receipt Date: 20080507
  Transmission Date: 20090109
  Serious: Yes (Other)
  Sender: FDA-Public Use
  Company Number: US-ASTRAZENECA-2006UW08501

PATIENT
  Age: 456 Month
  Sex: Male
  Weight: 147.4 kg

DRUGS (7)
  1. SEROQUEL [Suspect]
     Indication: DEPRESSION
     Route: 048
     Dates: start: 20030201, end: 20051001
  2. SEROQUEL [Suspect]
     Indication: BIPOLAR DISORDER
     Route: 048
     Dates: start: 20030201, end: 20051001
  3. SEROQUEL [Suspect]
     Route: 048
     Dates: start: 20030201, end: 20051001
  4. SEROQUEL [Suspect]
     Route: 048
     Dates: start: 20030201, end: 20051001
  5. ABILIFY [Concomitant]
  6. GEODON [Concomitant]
  7. THORAZINE [Concomitant]

REACTIONS (6)
  - BLOOD CHOLESTEROL INCREASED [None]
  - BLOOD TRIGLYCERIDES INCREASED [None]
  - DIABETES MELLITUS [None]
  - DIABETIC COMA [None]
  - HYPERTENSION [None]
  - ILL-DEFINED DISORDER [None]
